FAERS Safety Report 10790130 (Version 1)
Quarter: 2015Q1

REPORT INFORMATION
  Report Type: Spontaneous
  Country: US (occurrence: US)
  Receive Date: 20150212
  Receipt Date: 20150212
  Transmission Date: 20150721
  Serious: No
  Sender: FDA-Public Use
  Company Number: US-ELI_LILLY_AND_COMPANY-US201501007639

PATIENT
  Age: 55 Year
  Sex: Male

DRUGS (1)
  1. CIALIS [Suspect]
     Active Substance: TADALAFIL
     Indication: OFF LABEL USE
     Dosage: 5 MG, QD
     Route: 065

REACTIONS (7)
  - Pain [Unknown]
  - Dysphagia [Unknown]
  - Hypoacusis [Unknown]
  - Pollakiuria [Unknown]
  - Off label use [Unknown]
  - Drug dose omission [Unknown]
  - Laryngeal discomfort [Unknown]

NARRATIVE: CASE EVENT DATE: 201501
